FAERS Safety Report 10996493 (Version 2)
Quarter: 2015Q3

REPORT INFORMATION
  Report Type: Report from Study
  Country: US (occurrence: US)
  Receive Date: 20150408
  Receipt Date: 20150807
  Transmission Date: 20151125
  Serious: Yes (Hospitalization)
  Sender: FDA-Public Use
  Company Number: US-AMGEN-USASL2015033259

PATIENT
  Age: 46 Year
  Sex: Female

DRUGS (1)
  1. ENBREL [Suspect]
     Active Substance: ETANERCEPT
     Indication: PSORIASIS
     Dosage: UNK
     Route: 065
     Dates: start: 20130910

REACTIONS (3)
  - Psoriasis [Not Recovered/Not Resolved]
  - No therapeutic response [Unknown]
  - Obesity [Recovered/Resolved]

NARRATIVE: CASE EVENT DATE: 201407
